FAERS Safety Report 21885212 (Version 2)
Quarter: 2023Q1

REPORT INFORMATION
  Report Type: Spontaneous
  Country: US (occurrence: US)
  Receive Date: 20230119
  Receipt Date: 20230211
  Transmission Date: 20230417
  Serious: Yes (Hospitalization, Other)
  Sender: FDA-Public Use
  Company Number: US-TEVA-2023-US-2845734

PATIENT
  Age: 37 Year
  Sex: Male

DRUGS (6)
  1. CIPROFLOXACIN [Suspect]
     Active Substance: CIPROFLOXACIN
     Indication: Anal abscess
     Route: 065
  2. CIPROFLOXACIN [Suspect]
     Active Substance: CIPROFLOXACIN
     Indication: Klebsiella infection
  3. FLUCONAZOLE [Suspect]
     Active Substance: FLUCONAZOLE
     Indication: Disseminated coccidioidomycosis
     Dosage: 800 MILLIGRAM DAILY; ONCE DAILY
     Route: 065
  4. POSACONAZOLE [Suspect]
     Active Substance: POSACONAZOLE
     Indication: Disseminated coccidioidomycosis
     Dosage: 300 MILLIGRAM DAILY; DELAYED-RELEASE TABLETS, ONCE DAILY
     Route: 048
  5. METRONIDAZOLE [Concomitant]
     Active Substance: METRONIDAZOLE
     Indication: Anal abscess
     Dosage: 1500 MILLIGRAM DAILY; 500 MG THRICE DAILY
     Route: 065
  6. METRONIDAZOLE [Concomitant]
     Active Substance: METRONIDAZOLE
     Indication: Klebsiella infection

REACTIONS (5)
  - Pseudoaldosteronism [Recovering/Resolving]
  - Nausea [Unknown]
  - Abdominal pain [Unknown]
  - Dry mouth [Unknown]
  - Drug ineffective [Unknown]
